FAERS Safety Report 9049165 (Version 2)
Quarter: 2013Q2

REPORT INFORMATION
  Report Type: Spontaneous
  Country: US (occurrence: None)
  Receive Date: 20120525
  Receipt Date: 20120827
  Transmission Date: 20140414
  Serious: No
  Sender: FDA-Public Use
  Company Number: 346055

PATIENT
  Age: 72 Year
  Sex: Male

DRUGS (1)
  1. VICTOZA [Suspect]
     Indication: TYPE 2 DIABETES MELLITUS
     Route: 058
     Dates: start: 20120208

REACTIONS (7)
  - Abdominal distension [None]
  - Abdominal discomfort [None]
  - Nausea [None]
  - Weight decreased [None]
  - Abnormal loss of weight [None]
  - Eructation [None]
  - Diarrhoea [None]
